FAERS Safety Report 4901453-2 (Version None)
Quarter: 2006Q1

REPORT INFORMATION
  Report Type: 
  Country: None (occurrence: None)
  Receive Date: 20060201
  Receipt Date: 20060201
  Transmission Date: 20060701
  Serious: Yes (Other)
  Sender: FDA-Public Use
  Company Number: None

PATIENT
  Age: 63 Year
  Sex: Male
  Weight: 59.6 kg

DRUGS (1)
  1. EXCEDRIN [Suspect]

REACTIONS (1)
  - GASTROINTESTINAL DISORDER [None]
